FAERS Safety Report 14682883 (Version 3)
Quarter: 2018Q2

REPORT INFORMATION
  Report Type: Report from Study
  Country: US (occurrence: US)
  Receive Date: 20180327
  Receipt Date: 20180420
  Transmission Date: 20180711
  Serious: Yes (Hospitalization, Other)
  Sender: FDA-Public Use
  Company Number: US-GILEAD-2018-0328891

PATIENT
  Age: 56 Year
  Sex: Male

DRUGS (3)
  1. ADEMPAS [Concomitant]
     Active Substance: RIOCIGUAT
  2. COUMADIN [Concomitant]
     Active Substance: WARFARIN SODIUM
  3. AMBRISENTAN [Suspect]
     Active Substance: AMBRISENTAN
     Indication: PRODUCT USED FOR UNKNOWN INDICATION
     Dosage: 10 MG, QD
     Route: 065
     Dates: start: 20150226

REACTIONS (9)
  - Hypotension [Unknown]
  - Oesophageal haemorrhage [Unknown]
  - Presyncope [Unknown]
  - Urinary bladder haemorrhage [Unknown]
  - Vomiting [Unknown]
  - Fluid retention [Unknown]
  - Dizziness [Unknown]
  - Blood sodium decreased [Unknown]
  - Haemoglobin decreased [Unknown]
